FAERS Safety Report 13723100 (Version 1)
Quarter: 2017Q3

REPORT INFORMATION
  Report Type: Spontaneous
  Country: US (occurrence: US)
  Receive Date: 20170706
  Receipt Date: 20170706
  Transmission Date: 20171127
  Serious: No
  Sender: FDA-Public Use
  Company Number: US-BAYER-2017-129252

PATIENT
  Sex: Female

DRUGS (14)
  1. ALPRAZOLAM. [Concomitant]
     Active Substance: ALPRAZOLAM
     Indication: ANXIETY DISORDER
     Dosage: 0.5 MG, TID
     Dates: start: 20120730
  2. ARIPIPRAZOLE. [Concomitant]
     Active Substance: ARIPIPRAZOLE
     Indication: BIPOLAR II DISORDER
     Dosage: 1 DF, QD
     Dates: start: 20151207
  3. PRAVASTATIN SODIUM. [Concomitant]
     Active Substance: PRAVASTATIN SODIUM
     Indication: HYPERLIPIDAEMIA
     Dosage: 1 DF, HS
  4. ARIPIPRAZOLE. [Concomitant]
     Active Substance: ARIPIPRAZOLE
     Indication: DEPRESSION
  5. HYDROCODONE W/ACETAMINOPHEN [Concomitant]
     Active Substance: ACETAMINOPHEN\HYDROCODONE BITARTRATE
     Indication: BACK PAIN
  6. ALEVE [Suspect]
     Active Substance: NAPROXEN SODIUM
  7. ZOLPIDEM TARTRATE. [Concomitant]
     Active Substance: ZOLPIDEM TARTRATE
     Indication: INSOMNIA
     Dosage: 1/2 TO 1 TABLET HS AS NEEDED
     Route: 048
     Dates: start: 20120730
  8. BUPROPION HYDROCHLORIDE. [Concomitant]
     Active Substance: BUPROPION HYDROCHLORIDE
     Indication: DEPRESSION
     Dosage: 1 DF, TID
     Route: 048
     Dates: start: 20150820
  9. BUTALBITAL, ACETAMINOPHEN, AND CAFFEINE [Concomitant]
     Active Substance: ACETAMINOPHEN\BUTALBITAL\CAFFEINE
  10. PRISTIQ EXTENDED-RELEASE [Concomitant]
     Active Substance: DESVENLAFAXINE SUCCINATE
     Dosage: 1 DF, QD
     Route: 048
  11. PANTOPRAZOLE SODIUM. [Concomitant]
     Active Substance: PANTOPRAZOLE SODIUM
     Indication: GASTROOESOPHAGEAL REFLUX DISEASE
     Dosage: 1 DF, QD BEFORE BREAKFAST
  12. HYDROCHLOROTHIAZIDE. [Concomitant]
     Active Substance: HYDROCHLOROTHIAZIDE
     Indication: ESSENTIAL HYPERTENSION
     Dosage: 1 DF, QD
     Dates: start: 20131217
  13. HYDROCODONE W/ACETAMINOPHEN [Concomitant]
     Active Substance: ACETAMINOPHEN\HYDROCODONE BITARTRATE
     Indication: FIBROMYALGIA
     Dosage: 1 DF, TID AS NEEDED
     Dates: start: 20141020
  14. LYRICA [Concomitant]
     Active Substance: PREGABALIN
     Indication: PAIN IN EXTREMITY
     Dosage: 1 DF, BID
     Dates: start: 20120211

REACTIONS (1)
  - Drug hypersensitivity [None]
